FAERS Safety Report 9707199 (Version 1)
Quarter: 2013Q4

REPORT INFORMATION
  Report Type: Report from Study
  Country: LB (occurrence: LB)
  Receive Date: 20131125
  Receipt Date: 20131125
  Transmission Date: 20140711
  Serious: Yes (Death)
  Sender: FDA-Public Use
  Company Number: LB-SA-2013SA119434

PATIENT
  Age: 63 Year
  Sex: Male

DRUGS (7)
  1. LANTUS SOLOSTAR [Suspect]
     Indication: DIABETES MELLITUS
     Dosage: DOSE:20 UNIT(S)
     Route: 058
  2. HUMALOG [Concomitant]
     Route: 058
  3. AMARYL [Concomitant]
     Indication: DIABETES MELLITUS
     Route: 048
  4. VITAMINS NOS [Concomitant]
     Route: 048
  5. XATRAL [Concomitant]
  6. CONCOR [Concomitant]
  7. SOLOSTAR [Concomitant]

REACTIONS (1)
  - Myocardial infarction [Fatal]
